FAERS Safety Report 6415058-8 (Version None)
Quarter: 2009Q4

REPORT INFORMATION
  Report Type: 
  Country: None (occurrence: None)
  Receive Date: 20091021
  Receipt Date: 20091013
  Transmission Date: 20100525
  Serious: Yes (Death)
  Sender: FDA-Public Use
  Company Number: GXKR2009US11312

PATIENT
  Age: 34 Year
  Sex: Male

DRUGS (1)
  1. CEFAZOLIN [Suspect]
     Indication: CELLULITIS
     Dosage: INTRAVENOUS
     Route: 042

REACTIONS (7)
  - ANAPHYLACTIC REACTION [None]
  - BRAIN OEDEMA [None]
  - CONVULSION [None]
  - HYPERSENSITIVITY [None]
  - PULMONARY HAEMORRHAGE [None]
  - PULMONARY OEDEMA [None]
  - RESPIRATORY ARREST [None]
